FAERS Safety Report 12552858 (Version 2)
Quarter: 2016Q3

REPORT INFORMATION
  Report Type: Spontaneous
  Country: US (occurrence: US)
  Receive Date: 20160713
  Receipt Date: 20160803
  Transmission Date: 20161109
  Serious: No
  Sender: FDA-Public Use
  Company Number: US-BEH-2016071071

PATIENT
  Sex: Female
  Weight: 86.17 kg

DRUGS (29)
  1. ALBUTEROL                          /00139501/ [Concomitant]
     Active Substance: ALBUTEROL
  2. SKELAXIN [Concomitant]
     Active Substance: METAXALONE
  3. HYDROCHLOROTHIAZIDE. [Concomitant]
     Active Substance: HYDROCHLOROTHIAZIDE
  4. PANTOPRAZOLE [Concomitant]
     Active Substance: PANTOPRAZOLE SODIUM
  5. CLARITIN [Concomitant]
     Active Substance: LORATADINE
  6. EPIPEN [Concomitant]
     Active Substance: EPINEPHRINE
  7. VITAMIN B12 [Concomitant]
     Active Substance: CYANOCOBALAMIN
  8. LYSINE [Concomitant]
     Active Substance: LYSINE
  9. ASPIRIN. [Concomitant]
     Active Substance: ASPIRIN
  10. HIZENTRA [Suspect]
     Active Substance: HUMAN IMMUNOGLOBULIN G
     Indication: IMMUNODEFICIENCY COMMON VARIABLE
     Dosage: UNK
     Route: 058
  11. HIZENTRA [Suspect]
     Active Substance: HUMAN IMMUNOGLOBULIN G
     Dosage: 18 G, EVERY 5 DAYS
     Route: 058
  12. ADVAIR HFA [Concomitant]
     Active Substance: FLUTICASONE PROPIONATE\SALMETEROL XINAFOATE
  13. SIMVASTATIN. [Concomitant]
     Active Substance: SIMVASTATIN
  14. OSCAL                              /00514701/ [Concomitant]
  15. DIPHENHYDRAMINE. [Concomitant]
     Active Substance: DIPHENHYDRAMINE
  16. VITAMIN D                          /00107901/ [Concomitant]
     Active Substance: ERGOCALCIFEROL
  17. FLONASE [Concomitant]
     Active Substance: FLUTICASONE PROPIONATE
  18. BLACK COHOSH                       /01456801/ [Concomitant]
     Active Substance: BLACK COHOSH
  19. SINGULAIR [Concomitant]
     Active Substance: MONTELUKAST SODIUM
  20. XOPENEX [Concomitant]
     Active Substance: LEVALBUTEROL HYDROCHLORIDE
  21. MULTIVITAMIN                       /00097801/ [Concomitant]
     Active Substance: VITAMINS
  22. RANITIDINE. [Concomitant]
     Active Substance: RANITIDINE
  23. NEURONTIN [Concomitant]
     Active Substance: GABAPENTIN
  24. HIZENTRA [Suspect]
     Active Substance: HUMAN IMMUNOGLOBULIN G
     Dosage: UNK
     Route: 058
  25. STOOL SOFTENER [Concomitant]
     Active Substance: DOCUSATE CALCIUM
  26. ONGLYZA [Concomitant]
     Active Substance: SAXAGLIPTIN HYDROCHLORIDE
  27. FOSAMAX [Concomitant]
     Active Substance: ALENDRONATE SODIUM
  28. TYLENOL [Concomitant]
     Active Substance: ACETAMINOPHEN
  29. PULMICORT TURBUHALER [Concomitant]
     Active Substance: BUDESONIDE

REACTIONS (2)
  - Sinusitis [Recovered/Resolved]
  - Nasopharyngitis [Unknown]
